FAERS Safety Report 11814982 (Version 1)
Quarter: 2015Q4

REPORT INFORMATION
  Report Type: Spontaneous
  Country: US (occurrence: US)
  Receive Date: 20151209
  Receipt Date: 20151209
  Transmission Date: 20160305
  Serious: No
  Sender: FDA-Public Use
  Company Number: US-SA-2015SA146237

PATIENT
  Age: 64 Year
  Sex: Female

DRUGS (5)
  1. NPH INSULIN [Concomitant]
     Active Substance: INSULIN BEEF
     Dates: end: 20150901
  2. SOLOSTAR [Concomitant]
     Active Substance: DEVICE
     Dates: start: 20150901
  3. TOUJEO [Suspect]
     Active Substance: INSULIN GLARGINE
     Route: 065
     Dates: start: 20150901
  4. BYETTA [Suspect]
     Active Substance: EXENATIDE
     Route: 065
  5. BYETTA [Suspect]
     Active Substance: EXENATIDE
     Route: 065

REACTIONS (3)
  - Diarrhoea [Unknown]
  - Abdominal pain upper [Unknown]
  - Blood glucose increased [Unknown]

NARRATIVE: CASE EVENT DATE: 201509
